FAERS Safety Report 7352316-7 (Version None)
Quarter: 2011Q1

REPORT INFORMATION
  Report Type: 
  Country: None (occurrence: None)
  Receive Date: 20110315
  Receipt Date: 20110222
  Transmission Date: 20110831
  Serious: Yes (Life-Threatening, Hospitalization, Other)
  Sender: FDA-Public Use
  Company Number: US-BAYER-US-2007-038587

PATIENT
  Sex: Female
  Weight: 55 kg

DRUGS (9)
  1. YASMIN [Suspect]
     Indication: ORAL CONTRACEPTION
     Route: 048
     Dates: start: 20070301, end: 20070801
  2. NEXIUM [Concomitant]
     Indication: PROPHYLAXIS
     Dates: start: 20070801
  3. LIPITOR [Concomitant]
     Route: 065
     Dates: start: 20070801
  4. PLAVIX [Concomitant]
     Route: 065
     Dates: start: 20070828
  5. NITROGLYCERIN [Concomitant]
     Route: 065
     Dates: start: 20070828
  6. LISINOPRIL [Concomitant]
     Route: 065
     Dates: start: 20070801
  7. YAZ [Suspect]
     Indication: PRODUCT USED FOR UNKNOWN INDICATION
  8. METOPROLOL SUCCINATE [Concomitant]
     Route: 048
     Dates: start: 20070828
  9. MEPERIDINE/PROMETHAZINE [Concomitant]
     Route: 048
     Dates: start: 20070720

REACTIONS (3)
  - MYOCARDIAL INFARCTION [None]
  - DIZZINESS [None]
  - CHEST PAIN [None]
